FAERS Safety Report 5209374-5 (Version None)
Quarter: 2006Q4

REPORT INFORMATION
  Report Type: 
  Country: None (occurrence: None)
  Receive Date: 20061101
  Receipt Date: 20060728
  Transmission Date: 20070319
  Serious: No
  Sender: FDA-Public Use
  Company Number: CLOF-10300

PATIENT
  Age: 72 Year
  Sex: Female
  Weight: 51 kg

DRUGS (3)
  1. CLOFARABINE [Suspect]
     Indication: ACUTE MYELOID LEUKAEMIA
     Dosage: 60 MG DAILY IV
     Route: 042
     Dates: start: 20060718, end: 20060722
  2. LOSARTAN POSTASSIUM [Suspect]
     Dosage: 75 MG BID PO
     Route: 048
     Dates: end: 20060726
  3. HYDROCHLOROTHIAZIDE [Suspect]
     Indication: DRUG USE FOR UNKNOWN INDICATION
     Dosage: 12.5 MG QD PO
     Route: 048
     Dates: end: 20060726

REACTIONS (2)
  - BLOOD CREATINE INCREASED [None]
  - BLOOD CULTURE POSITIVE [None]
